FAERS Safety Report 12747686 (Version 1)
Quarter: 2016Q3

REPORT INFORMATION
  Report Type: Spontaneous
  Country: US (occurrence: US)
  Receive Date: 20160915
  Receipt Date: 20160915
  Transmission Date: 20161109
  Serious: No
  Sender: FDA-Public Use
  Company Number: US-JAZZ-2016-US-009908

PATIENT
  Age: 58 Year
  Sex: Female
  Weight: 108.84 kg

DRUGS (37)
  1. OXYCONTIN [Concomitant]
     Active Substance: OXYCODONE HYDROCHLORIDE
  2. FLECTOR [Concomitant]
     Active Substance: DICLOFENAC EPOLAMINE
  3. KCL [Concomitant]
     Active Substance: POTASSIUM CHLORIDE
  4. KLONOPIN [Concomitant]
     Active Substance: CLONAZEPAM
  5. PAXIL [Concomitant]
     Active Substance: PAROXETINE HYDROCHLORIDE
  6. TOPAMAX [Concomitant]
     Active Substance: TOPIRAMATE
  7. HYDROCHLOROTHIAZIDE. [Concomitant]
     Active Substance: HYDROCHLOROTHIAZIDE
  8. SUDAFED PE CONGESTION [Concomitant]
     Active Substance: PHENYLEPHRINE HYDROCHLORIDE
  9. XYREM [Suspect]
     Active Substance: SODIUM OXYBATE
     Dosage: DOSE ADJUSTMENT
     Route: 048
  10. CLONAZEPAM. [Concomitant]
     Active Substance: CLONAZEPAM
  11. POTASSIUM CL [Concomitant]
     Active Substance: POTASSIUM CHLORIDE
  12. TIZANIDINE HCL [Concomitant]
     Active Substance: TIZANIDINE HYDROCHLORIDE
  13. XYREM [Suspect]
     Active Substance: SODIUM OXYBATE
     Indication: NARCOLEPSY
     Dosage: 2.25 G, BID
     Route: 048
     Dates: start: 200903, end: 200904
  14. XYREM [Suspect]
     Active Substance: SODIUM OXYBATE
     Dosage: 3.5 G, BID
     Route: 048
  15. DETROL LA [Concomitant]
     Active Substance: TOLTERODINE TARTRATE
  16. VITAMIN D [Concomitant]
     Active Substance: CHOLECALCIFEROL
  17. GABAPENTIN. [Concomitant]
     Active Substance: GABAPENTIN
  18. EFFEXOR [Concomitant]
     Active Substance: VENLAFAXINE HYDROCHLORIDE
  19. GUAIFENESIN. [Concomitant]
     Active Substance: GUAIFENESIN
  20. PROAIR HFA [Concomitant]
     Active Substance: ALBUTEROL SULFATE
  21. METOPROLOL. [Concomitant]
     Active Substance: METOPROLOL
  22. RITALIN [Concomitant]
     Active Substance: METHYLPHENIDATE HYDROCHLORIDE
  23. HYDROMORPHONE HCL [Concomitant]
     Active Substance: HYDROMORPHONE HYDROCHLORIDE
  24. TIZANIDINE. [Concomitant]
     Active Substance: TIZANIDINE
  25. CHLORPHENIRAMINE. [Concomitant]
     Active Substance: CHLORPHENIRAMINE
  26. HCTZ [Concomitant]
     Active Substance: HYDROCHLOROTHIAZIDE
  27. LIDODERM [Concomitant]
     Active Substance: LIDOCAINE
  28. MOBIC [Concomitant]
     Active Substance: MELOXICAM
  29. ADVAIR HFA [Concomitant]
     Active Substance: FLUTICASONE PROPIONATE\SALMETEROL XINAFOATE
  30. LIPITOR [Concomitant]
     Active Substance: ATORVASTATIN CALCIUM
  31. METFORMIN HCL [Concomitant]
     Active Substance: METFORMIN HYDROCHLORIDE
  32. NUVIGIL [Concomitant]
     Active Substance: ARMODAFINIL
  33. SINGULAIR [Concomitant]
     Active Substance: MONTELUKAST SODIUM
  34. OXYCODONE HYDROCHLORIDE. [Concomitant]
     Active Substance: OXYCODONE HYDROCHLORIDE
  35. WARFARIN [Concomitant]
     Active Substance: WARFARIN
  36. LISINOPRIL. [Concomitant]
     Active Substance: LISINOPRIL
  37. OMEPRAZOLE. [Concomitant]
     Active Substance: OMEPRAZOLE

REACTIONS (7)
  - Aphasia [Recovering/Resolving]
  - Hypnagogic hallucination [Recovering/Resolving]
  - Feeling hot [Unknown]
  - Fall [Recovered/Resolved]
  - Hypothyroidism [Unknown]
  - Confusional state [Recovering/Resolving]
  - Hyperhidrosis [Unknown]

NARRATIVE: CASE EVENT DATE: 201605
